FAERS Safety Report 13951692 (Version 2)
Quarter: 2018Q1

REPORT INFORMATION
  Report Type: Spontaneous
  Country: US (occurrence: US)
  Receive Date: 20170908
  Receipt Date: 20180116
  Transmission Date: 20180508
  Serious: Yes (Hospitalization)
  Sender: FDA-Public Use
  Company Number: US-DSJP-DSU-2017-135748

PATIENT

DRUGS (1)
  1. BENICAR [Suspect]
     Active Substance: OLMESARTAN MEDOXOMIL
     Indication: PRODUCT USED FOR UNKNOWN INDICATION
     Dosage: 40 MG, QD
     Route: 048
     Dates: start: 20141029, end: 20150226

REACTIONS (5)
  - Nausea [Recovered/Resolved]
  - Large intestine polyp [Recovered/Resolved]
  - Vomiting [Recovered/Resolved]
  - Weight decreased [Unknown]
  - Diverticulum [Unknown]

NARRATIVE: CASE EVENT DATE: 20150226
